FAERS Safety Report 6329920-8 (Version None)
Quarter: 2009Q3

REPORT INFORMATION
  Report Type: 
  Country: None (occurrence: None)
  Receive Date: 20090825
  Receipt Date: 20090810
  Transmission Date: 20100115
  Serious: Yes (Other)
  Sender: FDA-Public Use
  Company Number: 2009S1000256

PATIENT
  Sex: Male

DRUGS (2)
  1. ACITRETIN [Suspect]
     Indication: PSORIASIS
     Dosage: 10 MG; QD; PO, 20 MG; QD; PO
     Route: 048
     Dates: start: 20070101, end: 20090101
  2. ACITRETIN [Suspect]
     Indication: PSORIASIS
     Dosage: 10 MG; QD; PO, 20 MG; QD; PO
     Route: 048
     Dates: start: 20090801

REACTIONS (2)
  - BLOOD TRIGLYCERIDES INCREASED [None]
  - RETINAL DETACHMENT [None]
